FAERS Safety Report 8030034-X (Version None)
Quarter: 2012Q1

REPORT INFORMATION
  Report Type: 
  Country: None (occurrence: None)
  Receive Date: 20120109
  Receipt Date: 20111229
  Transmission Date: 20120608
  Serious: Yes (Other)
  Sender: FDA-Public Use
  Company Number: CA-JNJFOC-20120100955

PATIENT
  Sex: Female
  Weight: 86 kg

DRUGS (4)
  1. REMICADE [Suspect]
     Indication: CROHN'S DISEASE
     Route: 042
  2. REMICADE [Suspect]
     Route: 042
     Dates: start: 20111026
  3. QUESTRAN [Concomitant]
  4. IMODIUM [Concomitant]

REACTIONS (3)
  - ASTHENIA [None]
  - PALPITATIONS [None]
  - PYREXIA [None]
